FAERS Safety Report 19547889 (Version 1)
Quarter: 2021Q3

REPORT INFORMATION
  Report Type: Spontaneous
  Country: FR (occurrence: FR)
  Receive Date: 20210714
  Receipt Date: 20210714
  Transmission Date: 20211014
  Serious: Yes (Hospitalization)
  Sender: FDA-Public Use
  Company Number: FR-MYLANLABS-2021M1041663

PATIENT
  Age: 43 Year
  Sex: Male

DRUGS (2)
  1. PARACETAMOL [Suspect]
     Active Substance: ACETAMINOPHEN
     Indication: PAIN
     Dosage: 4 GRAM, QD (4G / D ON 01 AND 02/01)
     Route: 048
     Dates: start: 20210101, end: 20210102
  2. PARACETAMOL [Suspect]
     Active Substance: ACETAMINOPHEN
     Dosage: 16 GRAM (16G OVER 12H)
     Route: 048
     Dates: start: 20210103, end: 20210103

REACTIONS (3)
  - Wrong dose [Not Recovered/Not Resolved]
  - Overdose [Recovered/Resolved]
  - Hepatic cytolysis [Recovering/Resolving]

NARRATIVE: CASE EVENT DATE: 20210103
